FAERS Safety Report 5521542-1 (Version None)
Quarter: 2007Q4

REPORT INFORMATION
  Report Type: 
  Country: None (occurrence: None)
  Receive Date: 20071119
  Receipt Date: 20071119
  Transmission Date: 20080405
  Serious: Yes (Other)
  Sender: FDA-Public Use
  Company Number: None

PATIENT
  Age: 41 Year
  Sex: Female
  Weight: 144.6975 kg

DRUGS (1)
  1. ZOCOR [Suspect]

REACTIONS (1)
  - MYALGIA [None]
